FAERS Safety Report 20306928 (Version 2)
Quarter: 2022Q3

REPORT INFORMATION
  Report Type: Spontaneous
  Country: US (occurrence: US)
  Receive Date: 20220106
  Receipt Date: 20220718
  Transmission Date: 20221026
  Serious: Yes (Death, Other)
  Sender: FDA-Public Use
  Company Number: US-BRISTOL-MYERS SQUIBB COMPANY-BMS-2022-000898

PATIENT
  Age: 70 Year
  Sex: Male
  Weight: 80.2 kg

DRUGS (19)
  1. OPDIVO [Suspect]
     Active Substance: NIVOLUMAB
     Indication: Tonsil cancer
     Dosage: 240 MILLIGRAM, EVERY 14 DAYS
     Route: 042
  2. YERVOY [Suspect]
     Active Substance: IPILIMUMAB
     Indication: Tonsil cancer
     Dosage: 80.7 MG EVERY 6 WEEKS
     Route: 042
  3. METOPROLOL TARTRATE [Concomitant]
     Active Substance: METOPROLOL TARTRATE
     Indication: Product used for unknown indication
     Dosage: UNK
     Route: 065
  4. ALUMINUM [Concomitant]
     Active Substance: ALUMINUM
     Indication: Product used for unknown indication
     Dosage: UNK
     Route: 065
  5. MAGNESIUM HYDROXIDE [Concomitant]
     Active Substance: MAGNESIUM HYDROXIDE
     Indication: Product used for unknown indication
     Dosage: UNK
     Route: 065
  6. SIMETHICONE (DIMETHICONE) [Concomitant]
     Active Substance: DIMETHICONE
     Indication: Product used for unknown indication
     Dosage: UNK
     Route: 065
  7. ACETAMINOPHEN [Concomitant]
     Active Substance: ACETAMINOPHEN
     Indication: Product used for unknown indication
     Dosage: UNK
     Route: 065
  8. ALBUTEROL [Concomitant]
     Active Substance: ALBUTEROL
     Indication: Product used for unknown indication
     Dosage: UNK
     Route: 065
  9. LIPITOR [Concomitant]
     Active Substance: ATORVASTATIN CALCIUM
     Indication: Product used for unknown indication
     Dosage: UNK
     Route: 065
  10. CHLORHEXIDINE [Concomitant]
     Active Substance: CHLORHEXIDINE
     Indication: Product used for unknown indication
     Dosage: UNK
     Route: 065
  11. CYCLOBENZAPRINE [Concomitant]
     Active Substance: CYCLOBENZAPRINE
     Indication: Product used for unknown indication
     Dosage: UNK
     Route: 065
  12. GABAPENTIN [Concomitant]
     Active Substance: GABAPENTIN
     Indication: Product used for unknown indication
     Dosage: UNK
     Route: 065
  13. ACETAMINOPHEN\HYDROCODONE [Concomitant]
     Active Substance: ACETAMINOPHEN\HYDROCODONE
     Indication: Product used for unknown indication
     Dosage: UNK
     Route: 065
  14. IBUPROFEN [Concomitant]
     Active Substance: IBUPROFEN
     Indication: Product used for unknown indication
     Dosage: UNK
     Route: 065
  15. METOPROLOL SUCCINATE [Concomitant]
     Active Substance: METOPROLOL SUCCINATE
     Indication: Product used for unknown indication
     Dosage: UNK
     Route: 065
  16. ZOFRAN [Concomitant]
     Active Substance: ONDANSETRON HYDROCHLORIDE
     Indication: Product used for unknown indication
     Dosage: UNK
     Route: 065
  17. HYDROCHLOROTHIAZIDE\TRIAMTERENE [Concomitant]
     Active Substance: HYDROCHLOROTHIAZIDE\TRIAMTERENE
     Indication: Product used for unknown indication
     Dosage: UNK
     Route: 065
  18. TRAMADOL [Concomitant]
     Active Substance: TRAMADOL
     Indication: Product used for unknown indication
     Dosage: UNK
     Route: 065
  19. LIDOCAINE [Concomitant]
     Active Substance: LIDOCAINE
     Indication: Product used for unknown indication
     Dosage: UNK
     Route: 065

REACTIONS (2)
  - Death [Fatal]
  - Intentional product use issue [Unknown]
